FAERS Safety Report 8065816-1 (Version None)
Quarter: 2012Q1

REPORT INFORMATION
  Report Type: 
  Country: None (occurrence: None)
  Receive Date: 20120117
  Receipt Date: 20120104
  Transmission Date: 20120608
  Serious: Yes (Life-Threatening)
  Sender: FDA-Public Use
  Company Number: 2012CP000006

PATIENT
  Age: 30 Year
  Sex: Female

DRUGS (4)
  1. ACETAMINOPHEN [Suspect]
     Dosage: PO
     Route: 048
     Dates: start: 20100101, end: 20101229
  2. CLOMID [Concomitant]
  3. ACETAMINOPHEN [Suspect]
     Indication: LOWER RESPIRATORY TRACT INFECTION
     Dosage: IV
     Route: 042
     Dates: start: 20100101, end: 20101229
  4. ACETAMINOPHEN [Suspect]
     Dosage: 5 GRAM; 1 DAY; PO
     Route: 048
     Dates: start: 20101227

REACTIONS (10)
  - ABDOMINAL PAIN [None]
  - PANCREATITIS [None]
  - VOMITING [None]
  - HEPATITIS FULMINANT [None]
  - TOXICITY TO VARIOUS AGENTS [None]
  - CHOLESTASIS [None]
  - THROMBOCYTOPENIA [None]
  - CYTOLYTIC HEPATITIS [None]
  - OVERDOSE [None]
  - SELF-MEDICATION [None]
